FAERS Safety Report 9100180 (Version 2)
Quarter: 2013Q1

REPORT INFORMATION
  Report Type: Spontaneous
  Country: FR (occurrence: FR)
  Receive Date: 20130212
  Receipt Date: 20130327
  Transmission Date: 20140127
  Serious: Yes (Hospitalization, Other)
  Sender: FDA-Public Use
  Company Number: FR-009507513-1302FRA002902

PATIENT
  Age: 31 Year
  Sex: Female

DRUGS (1)
  1. VARNOLINE [Suspect]
     Indication: CONTRACEPTION
     Dosage: 1 DF, QD
     Route: 048
     Dates: start: 20120823, end: 20121026

REACTIONS (2)
  - Epilepsy [Recovered/Resolved]
  - Venous thrombosis [Recovered/Resolved]
